FAERS Safety Report 19868452 (Version 1)
Quarter: 2021Q3

REPORT INFORMATION
  Report Type: Spontaneous
  Country: IT (occurrence: IT)
  Receive Date: 20210921
  Receipt Date: 20210921
  Transmission Date: 20211014
  Serious: Yes (Other)
  Sender: FDA-Public Use
  Company Number: IT-ELI_LILLY_AND_COMPANY-IT202109004742

PATIENT
  Age: 79 Year
  Sex: Male
  Weight: 71 kg

DRUGS (9)
  1. EZEQUA [Concomitant]
     Active Substance: DULOXETINE HYDROCHLORIDE
     Indication: MOOD ALTERED
     Dosage: 60 MG, DAILY
     Route: 065
     Dates: start: 20191030
  2. BISOPROLOL FUMARATE. [Concomitant]
     Active Substance: BISOPROLOL FUMARATE
     Indication: PRODUCT USED FOR UNKNOWN INDICATION
     Dosage: 1 DOSAGE FORM, CYCLICAL
     Route: 048
  3. DUTASTERIDE. [Concomitant]
     Active Substance: DUTASTERIDE
     Indication: PRODUCT USED FOR UNKNOWN INDICATION
     Dosage: 0.5 MG, DAILY
     Route: 048
     Dates: start: 20181004
  4. CLOPIDOGREL [Concomitant]
     Active Substance: CLOPIDOGREL BISULFATE
     Indication: PRODUCT USED FOR UNKNOWN INDICATION
     Dosage: 75 MG, DAILY
     Route: 048
     Dates: start: 20181004
  5. DELTACORTENE [Concomitant]
     Active Substance: PREDNISONE
     Indication: SERONEGATIVE ARTHRITIS
     Dosage: 5 MG, DAILY
     Route: 048
     Dates: start: 20190204
  6. LYRICA [Concomitant]
     Active Substance: PREGABALIN
     Indication: MOOD ALTERED
     Route: 065
     Dates: start: 20191030
  7. OLUMIANT [Suspect]
     Active Substance: BARICITINIB
     Indication: POLYMYALGIA RHEUMATICA
     Dosage: 4 MG, DAILY
     Route: 048
     Dates: start: 20200803
  8. METHOTREXATE. [Concomitant]
     Active Substance: METHOTREXATE
     Indication: POLYMYALGIA RHEUMATICA
     Dosage: 7.5 MG, WEEKLY (1/W)
     Route: 048
     Dates: start: 20190204
  9. FOLINA [CALCIUM FOLINATE] [Concomitant]
     Active Substance: LEUCOVORIN CALCIUM
     Indication: FOLATE DEFICIENCY
     Dosage: 10 MG, WEEKLY (1/W)
     Route: 048
     Dates: start: 20190204

REACTIONS (2)
  - Off label use [Unknown]
  - Lung adenocarcinoma [Unknown]

NARRATIVE: CASE EVENT DATE: 20200803
